FAERS Safety Report 10366563 (Version 1)
Quarter: 2014Q3

REPORT INFORMATION
  Report Type: Spontaneous
  Country: DE (occurrence: None)
  Receive Date: 20140804
  Receipt Date: 20140804
  Transmission Date: 20150326
  Serious: Yes (Hospitalization)
  Sender: FDA-Public Use
  Company Number: FK201403031

PATIENT
  Age: 72 Year
  Sex: Female
  Weight: 90 kg

DRUGS (8)
  1. MOXONIDIN (MOXONIDINE) [Concomitant]
  2. EREMFAT [Suspect]
     Active Substance: RIFAMPIN
     Indication: DEVICE RELATED INFECTION
     Route: 042
     Dates: start: 20140628, end: 20140711
  3. COAPROVEL (KARVEA HCT) [Concomitant]
  4. TIMOLOL(TIMOLOL) [Concomitant]
  5. BISOPROLOL (BISOPROLOL) [Concomitant]
     Active Substance: BISOPROLOL
  6. SIMVASTATIN (SIMVASTATIN) [Concomitant]
     Active Substance: SIMVASTATIN
  7. VANCOMYCIN (VANCOMYCIN) [Suspect]
     Active Substance: VANCOMYCIN
     Indication: DEVICE RELATED INFECTION
     Route: 042
     Dates: start: 20140628, end: 20140711
  8. AMLODIPINE [Concomitant]
     Active Substance: AMLODIPINE BESYLATE

REACTIONS (1)
  - Hypertension [None]

NARRATIVE: CASE EVENT DATE: 20140702
